FAERS Safety Report 19116155 (Version 1)
Quarter: 2021Q2

REPORT INFORMATION
  Report Type: Spontaneous
  Country: NL (occurrence: DE)
  Receive Date: 20210409
  Receipt Date: 20210409
  Transmission Date: 20210717
  Serious: Yes (Death, Hospitalization)
  Sender: FDA-Public Use
  Company Number: DE-FRESENIUS KABI-FK202103439

PATIENT
  Age: 74 Year
  Sex: Male

DRUGS (12)
  1. METOPROLOL. [Concomitant]
     Active Substance: METOPROLOL
     Indication: PRODUCT USED FOR UNKNOWN INDICATION
     Dosage: 47.5 MG, 1?0?1?0, TABLETS; PROLONGED RELEASE?TABLETS?PHARMACEUTICAL DOSE FORM (FREE TEXT): PROLONGED
     Route: 065
  2. RIVAROXABAN [Concomitant]
     Active Substance: RIVAROXABAN
     Indication: PRODUCT USED FOR UNKNOWN INDICATION
     Dosage: 20 MG, 1?0?0?0, TABLETS?PHARMACEUTICAL DOSE FORM (FREE TEXT): TABLET
     Route: 065
  3. METAMIZOLE [Concomitant]
     Active Substance: METAMIZOLE
     Indication: PRODUCT USED FOR UNKNOWN INDICATION
     Dosage: AS REQUIRED UP TO 4X40, DROPS
     Route: 065
  4. GLIMEPIRIDE. [Concomitant]
     Active Substance: GLIMEPIRIDE
     Indication: PRODUCT USED FOR UNKNOWN INDICATION
     Dosage: 2 MG, 1.5?0?0?0, TABLETS?PHARMACEUTICAL DOSE FORM (FREE TEXT): TABLET
     Route: 065
  5. PANTOPRAZOLE [Concomitant]
     Active Substance: PANTOPRAZOLE
     Indication: PRODUCT USED FOR UNKNOWN INDICATION
     Dosage: 40 MG, 1?0?0?0, TABLETS?PHARMACEUTICAL DOSE FORM (FREE TEXT): TABLET
     Route: 065
  6. ALLOPURINOL. [Concomitant]
     Active Substance: ALLOPURINOL
     Indication: PRODUCT USED FOR UNKNOWN INDICATION
     Dosage: 300 MG, 1?0?0?0, TABLETS?PHARMACEUTICAL DOSE FORM (FREE TEXT): TABLET
     Route: 065
  7. TORASEMIDE [Concomitant]
     Active Substance: TORSEMIDE
     Indication: PRODUCT USED FOR UNKNOWN INDICATION
     Dosage: 10 MG, AS REQUIRED 0.5?0.5?0?0, TABLETS?PHARMACEUTICAL DOSE FORM (FREE TEXT): TABLET
     Route: 065
  8. DIGITOXIN [Concomitant]
     Active Substance: DIGITOXIN
     Indication: PRODUCT USED FOR UNKNOWN INDICATION
     Dosage: 0.1 MG, NEW SINCE 18/DEC/2020, SUNDAYS DRUG HOLIDAY (PAUSING), TABLETS?PHARMACEUTICAL DOSE FORM (FRE
     Route: 065
  9. PREDNISOLONE. [Suspect]
     Active Substance: PREDNISOLONE
     Indication: PRODUCT USED FOR UNKNOWN INDICATION
     Route: 065
  10. GLYCOPYRRONIUM BROMIDE/INDACATEROL MALEATE [Concomitant]
     Active Substance: GLYCOPYRROLATE\INDACATEROL MALEATE
     Indication: PRODUCT USED FOR UNKNOWN INDICATION
     Dosage: 1?0?0?0, METERED AEROSOL?ROUTE OF ADMINISTRATION TERM ID: RESPIRATORY (INHALATION)
     Route: 055
  11. GEMCITABINE. [Suspect]
     Active Substance: GEMCITABINE
     Indication: PRODUCT USED FOR UNKNOWN INDICATION
     Route: 065
  12. ATORVASTATIN [Concomitant]
     Active Substance: ATORVASTATIN
     Indication: PRODUCT USED FOR UNKNOWN INDICATION
     Dosage: 80 MG, 0?0?1?0, TABLETS?PHARMACEUTICAL DOSE FORM (FREE TEXT): TABLET
     Route: 065

REACTIONS (4)
  - Dyspnoea exertional [Unknown]
  - General physical health deterioration [Unknown]
  - Oedema peripheral [Unknown]
  - Anaemia [Unknown]
